FAERS Safety Report 23439463 (Version 1)
Quarter: 2024Q1

REPORT INFORMATION
  Report Type: Spontaneous
  Country: US (occurrence: None)
  Receive Date: 20240124
  Receipt Date: 20240124
  Transmission Date: 20240409
  Serious: Yes (Death)
  Sender: FDA-Public Use
  Company Number: None

PATIENT
  Age: 78 Year
  Sex: Male

DRUGS (7)
  1. TACROLIMUS [Suspect]
     Active Substance: TACROLIMUS
     Indication: Liver transplant
     Dosage: 1 CAPSULE BID ORAL
     Route: 048
     Dates: start: 20210826, end: 20240121
  2. ATORVASTATIN [Concomitant]
     Active Substance: ATORVASTATIN
  3. GABAPENTIN [Concomitant]
     Active Substance: GABAPENTIN
  4. LINZESS [Concomitant]
     Active Substance: LINACLOTIDE
  5. MAGNESIUM [Concomitant]
     Active Substance: MAGNESIUM
  6. XARELTO [Concomitant]
     Active Substance: RIVAROXABAN
  7. TYLENOL [Concomitant]
     Active Substance: ACETAMINOPHEN

REACTIONS (3)
  - Weight decreased [None]
  - Aortic stenosis [None]
  - Renal artery stenosis [None]

NARRATIVE: CASE EVENT DATE: 20240121
